FAERS Safety Report 9656570 (Version 1)
Quarter: 2013Q4

REPORT INFORMATION
  Report Type: Spontaneous
  Country: US (occurrence: US)
  Receive Date: 20131030
  Receipt Date: 20131030
  Transmission Date: 20140711
  Serious: No
  Sender: FDA-Public Use
  Company Number: US-GLAXOSMITHKLINE-A0992598A

PATIENT
  Sex: Female

DRUGS (4)
  1. SEREVENT [Suspect]
     Indication: CHRONIC OBSTRUCTIVE PULMONARY DISEASE
     Route: 055
     Dates: start: 201208
  2. BLOOD PRESSURE MEDICATION [Concomitant]
  3. DIURETIC [Concomitant]
  4. POTASSIUM [Concomitant]

REACTIONS (3)
  - Dysphonia [Not Recovered/Not Resolved]
  - Dysphonia [Not Recovered/Not Resolved]
  - Tongue dry [Not Recovered/Not Resolved]
